FAERS Safety Report 25853250 (Version 1)
Quarter: 2025Q3

REPORT INFORMATION
  Report Type: Spontaneous
  Country: US (occurrence: US)
  Receive Date: 20250926
  Receipt Date: 20250926
  Transmission Date: 20251020
  Serious: Yes (Other)
  Sender: ELI LILLY AND COMPANY
  Company Number: US-ELI_LILLY_AND_COMPANY-US202509019211

PATIENT
  Age: 55 Year
  Sex: Female
  Weight: 47.166 kg

DRUGS (2)
  1. HUMALOG [Suspect]
     Active Substance: INSULIN LISPRO
     Indication: Product used for unknown indication
     Route: 065
  2. LANTUS [Suspect]
     Active Substance: INSULIN GLARGINE
     Indication: Product used for unknown indication
     Route: 065

REACTIONS (7)
  - Blood glucose increased [Recovering/Resolving]
  - Dyspnoea [Recovering/Resolving]
  - Dizziness [Recovering/Resolving]
  - Dry mouth [Recovering/Resolving]
  - Starvation [Recovering/Resolving]
  - Asthenia [Recovering/Resolving]
  - Nausea [Recovering/Resolving]

NARRATIVE: CASE EVENT DATE: 20250914
